FAERS Safety Report 5468146-7 (Version None)
Quarter: 2007Q3

REPORT INFORMATION
  Report Type: 
  Country: None (occurrence: None)
  Receive Date: 20070921
  Receipt Date: 20070905
  Transmission Date: 20080115
  Serious: Yes (Death)
  Sender: FDA-Public Use
  Company Number: 8026761

PATIENT
  Sex: Male

DRUGS (4)
  1. KEPPRA [Suspect]
     Indication: STATUS EPILEPTICUS
     Dosage: 8000 MG /D IV
     Route: 042
  2. VALPROIC ACID [Concomitant]
  3. PHENYTOIN [Concomitant]
  4. BENZODIAZEPINES [Concomitant]

REACTIONS (1)
  - HYPOXIC ENCEPHALOPATHY [None]
